FAERS Safety Report 6967197-0 (Version None)
Quarter: 2010Q3

REPORT INFORMATION
  Report Type: 
  Country: None (occurrence: None)
  Receive Date: 20100907
  Receipt Date: 20100826
  Transmission Date: 20110219
  Serious: Yes (Other)
  Sender: FDA-Public Use
  Company Number: US-JNJFOC-20100900096

PATIENT
  Sex: Female

DRUGS (3)
  1. RISPERDAL [Suspect]
     Indication: BIPOLAR DISORDER
     Route: 065
  2. RISPERDAL [Suspect]
     Indication: BIPOLAR DISORDER
     Route: 048
  3. ASPIRIN [Concomitant]
     Indication: PRODUCT USED FOR UNKNOWN INDICATION

REACTIONS (8)
  - BREAST CANCER [None]
  - BREAST DISCHARGE [None]
  - BREAST PAIN [None]
  - BREAST SWELLING [None]
  - FATIGUE [None]
  - HAEMORRHAGE [None]
  - INCREASED APPETITE [None]
  - PRURITUS GENERALISED [None]
